FAERS Safety Report 5819226-5 (Version None)
Quarter: 2008Q3

REPORT INFORMATION
  Report Type: 
  Country: None (occurrence: None)
  Receive Date: 20080721
  Receipt Date: 20080721
  Transmission Date: 20090109
  Serious: Yes (Death)
  Sender: FDA-Public Use
  Company Number: None

PATIENT
  Age: 63 Year
  Sex: Male
  Weight: 68.0396 kg

DRUGS (2)
  1. LORATADINE 10 MG CVS PHARMACY [Suspect]
     Indication: URTICARIA THERMAL
     Dosage: 1 TABLET DAILY PO
     Route: 048
     Dates: start: 20070501, end: 20071122
  2. ZANTAC [Suspect]
     Indication: URTICARIA THERMAL
     Dosage: 1 TABLET WHEN EXPOSE 2 COLD PO
     Route: 048
     Dates: start: 20070501, end: 20071122

REACTIONS (2)
  - COMPLETED SUICIDE [None]
  - SLEEP DISORDER [None]
